FAERS Safety Report 5317994-2 (Version None)
Quarter: 2007Q2

REPORT INFORMATION
  Report Type: 
  Country: None (occurrence: None)
  Receive Date: 20070504
  Receipt Date: 20070504
  Transmission Date: 20071010
  Serious: Yes (Death, Life-Threatening, Hospitalization)
  Sender: FDA-Public Use
  Company Number: None

PATIENT
  Age: 86 Year
  Sex: Male
  Weight: 69.8539 kg

DRUGS (2)
  1. WARFARIN SODIUM [Suspect]
     Indication: AORTIC VALVE REPLACEMENT
     Dosage: 7.5 MG DAILY PO
     Route: 048
     Dates: start: 19990101, end: 20070117
  2. WARFARIN SODIUM [Suspect]
     Indication: ATRIAL FIBRILLATION
     Dosage: 7.5 MG DAILY PO
     Route: 048
     Dates: start: 19990101, end: 20070117

REACTIONS (2)
  - HAEMORRHAGE INTRACRANIAL [None]
  - MASS [None]
